FAERS Safety Report 11720367 (Version 2)
Quarter: 2016Q2

REPORT INFORMATION
  Report Type: Report from Study
  Country: JP (occurrence: JP)
  Receive Date: 20151110
  Receipt Date: 20160517
  Transmission Date: 20160815
  Serious: Yes (Disabling, Other)
  Sender: FDA-Public Use
  Company Number: JP-009507513-1507JPN013270

PATIENT
  Age: 47 Year
  Sex: Female

DRUGS (12)
  1. AMLODIN OD [Concomitant]
     Active Substance: AMLODIPINE BESYLATE
     Indication: HYPERTENSION
     Dosage: 5 MG, QD
     Route: 048
     Dates: start: 20140724
  2. ISOTONIC SODIUM CHLORIDE SOLUTION [Concomitant]
     Active Substance: SODIUM CHLORIDE
     Indication: CHEMOTHERAPY
     Dosage: 50ML X 220ML/H, 50ML X, 600ML/H, 140ML X 250ML/H, 100ML X 200ML/H; 4 COURSES/2 MONTHS
     Route: 051
     Dates: start: 20140908, end: 20141027
  3. ENDOXAN [Concomitant]
     Active Substance: CYCLOPHOSPHAMIDE
     Indication: CHEMOTHERAPY
     Dosage: 800MG X 250ML/H; 4 COURSES/2 MONTHS
     Route: 051
     Dates: start: 20140908, end: 20141027
  4. BENAMBAX [Concomitant]
     Active Substance: PENTAMIDINE
     Indication: PROPHYLAXIS
     Dosage: 100 MG, QM
     Route: 051
     Dates: start: 20140901
  5. EMEND [Concomitant]
     Active Substance: APREPITANT
     Indication: PROPHYLAXIS
     Dosage: 125 MG, QD
     Route: 048
     Dates: start: 20140908, end: 20141027
  6. EPIRUBICIN HYDROCHLORIDE. [Concomitant]
     Active Substance: EPIRUBICIN HYDROCHLORIDE
     Indication: CHEMOTHERAPY
     Dosage: 160MG X 600ML/H; 4 COURSES/2 MONTHS
     Route: 051
     Dates: start: 20140908, end: 20141027
  7. VENETLIN [Concomitant]
     Active Substance: ALBUTEROL SULFATE
     Indication: PROPHYLAXIS
     Dosage: 0.3 ML, QM
     Route: 055
     Dates: start: 20140901
  8. ISENTRESS [Suspect]
     Active Substance: RALTEGRAVIR POTASSIUM
     Indication: HIV INFECTION
     Dosage: 800 MG, QD, DIVIDED DOSE FREQUENCY UNKNOWN
     Route: 048
     Dates: start: 20140529
  9. ALOXI [Concomitant]
     Active Substance: PALONOSETRON HYDROCHLORIDE
     Indication: CHEMOTHERAPY
     Dosage: 0. 7 5MG X 220M L/H; 4 COURSES/2 MONTHS
     Route: 042
     Dates: start: 20140908, end: 20141027
  10. TRUVADA [Concomitant]
     Active Substance: EMTRICITABINE\TENOFOVIR DISOPROXIL FUMARATE
     Indication: HIV INFECTION
     Dosage: 1 TABLET, QD, ALSO REPORTED AS: DIVIDED DOSE, FREQUENCY UNKNOWN
     Route: 048
     Dates: start: 20140529
  11. FLUOROURACIL. [Concomitant]
     Active Substance: FLUOROURACIL
     Indication: CHEMOTHERAPY
     Dosage: 800MG X 200ML/H; 4 COURSES/2 MONTHS
     Route: 051
     Dates: start: 20140908, end: 20141027
  12. DEXART [Concomitant]
     Active Substance: DEXAMETHASONE SODIUM PHOSPHATE
     Indication: CHEMOTHERAPY
     Dosage: 9.9MG X 220M L/H; 4 COURSES/2 MONTHS
     Route: 051
     Dates: start: 20140908, end: 20141027

REACTIONS (1)
  - Bone marrow failure [Recovered/Resolved]

NARRATIVE: CASE EVENT DATE: 20140922
